FAERS Safety Report 5343632-9 (Version None)
Quarter: 2007Q2

REPORT INFORMATION
  Report Type: 
  Country: None (occurrence: None)
  Receive Date: 20070416
  Receipt Date: 20070123
  Transmission Date: 20071010
  Serious: No
  Sender: FDA-Public Use
  Company Number: 2007SP000264

PATIENT
  Age: 48 Year
  Sex: Female

DRUGS (2)
  1. LUNESTA [Suspect]
     Dosage: ORAL
     Route: 048
     Dates: start: 20060101
  2. MULTIVITAMIN [Concomitant]

REACTIONS (1)
  - MUSCLE SPASMS [None]
